FAERS Safety Report 20465439 (Version 2)
Quarter: 2022Q3

REPORT INFORMATION
  Report Type: Report from Study
  Country: US (occurrence: US)
  Receive Date: 20220212
  Receipt Date: 20220711
  Transmission Date: 20221027
  Serious: No
  Sender: FDA-Public Use
  Company Number: US-NOVARTISTESTPH-NVSC2022US032121

PATIENT
  Sex: Female

DRUGS (1)
  1. ENTRESTO [Suspect]
     Active Substance: SACUBITRIL\VALSARTAN
     Indication: Product used for unknown indication
     Dosage: UNK, STARTED ENTRESTO APPROX NOV 2021
     Route: 065

REACTIONS (4)
  - Oral discomfort [Unknown]
  - COVID-19 [Unknown]
  - Energy increased [Unknown]
  - Fatigue [Unknown]
